FAERS Safety Report 4337636-2 (Version None)
Quarter: 2004Q2

REPORT INFORMATION
  Report Type: 
  Country: None (occurrence: None)
  Receive Date: 20040402
  Receipt Date: 20031211
  Transmission Date: 20050107
  Serious: Yes (Life-Threatening, Hospitalization)
  Sender: FDA-Public Use
  Company Number: 231758

PATIENT
  Age: 45 Year
  Sex: Male
  Weight: 68 kg

DRUGS (5)
  1. NOVOLOG [Suspect]
     Indication: DIABETES MELLITUS INSULIN-DEPENDENT
     Dosage: 20 IU, QD, SUBCUTAN.-PUMP
     Route: 058
  2. DILANTIN [Concomitant]
  3. EFFEXOR [Concomitant]
  4. REGLAN [Concomitant]
  5. INSULIN PUMP [Concomitant]

REACTIONS (1)
  - HYPOGLYCAEMIC COMA [None]
